FAERS Safety Report 18107123 (Version 1)
Quarter: 2020Q3

REPORT INFORMATION
  Report Type: Report from Study
  Country: NL (occurrence: NL)
  Receive Date: 20200803
  Receipt Date: 20200803
  Transmission Date: 20201103
  Serious: Yes (Other)
  Sender: FDA-Public Use
  Company Number: NL-MYLANLABS-2019M1041497

PATIENT
  Age: 39 Year
  Sex: Female

DRUGS (2)
  1. GLATIRAMEERACETAAT MYLAN 40 MG/ML [Suspect]
     Active Substance: GLATIRAMER ACETATE
     Indication: MULTIPLE SCLEROSIS
     Dosage: UNK, 3XW
     Route: 058
     Dates: start: 20190316
  2. GLATIRAMEERACETAT [Concomitant]
     Dosage: UNK
     Dates: start: 20161107

REACTIONS (3)
  - Abdominal pain upper [Recovered/Resolved]
  - Anxiety [Recovering/Resolving]
  - Multiple sclerosis [Not Recovered/Not Resolved]

NARRATIVE: CASE EVENT DATE: 20190410
